FAERS Safety Report 11855670 (Version 1)
Quarter: 2015Q4

REPORT INFORMATION
  Report Type: Spontaneous
  Country: NL (occurrence: NL)
  Receive Date: 20151221
  Receipt Date: 20151221
  Transmission Date: 20160305
  Serious: Yes (Hospitalization)
  Sender: FDA-Public Use
  Company Number: NL-TEVA-618633ACC

PATIENT
  Age: 63 Year
  Sex: Female
  Weight: 85 kg

DRUGS (9)
  1. NITROFURANTOINE MC TEVA CAPSULE  50MG [Concomitant]
     Dosage: 50 MILLIGRAM DAILY; ONCE DAILY ONE
     Route: 048
     Dates: start: 20150924
  2. LACTULOSESTROOP PCH 667MG/ML [Concomitant]
     Dosage: 1-2 TIMES DAILY 15 ML
     Route: 048
     Dates: start: 20151031
  3. LEVETIRACETAM TEVA TABLET FILMOMHULD 1000MG [Concomitant]
     Dosage: TWICE DAILY ONE
     Route: 048
     Dates: start: 20140627
  4. LEVETIRACETAM AUROBINDO TABLET FILMOMHULD  250MG [Concomitant]
     Dosage: 500 MILLIGRAM DAILY; TWICE DAILY ONE
     Route: 048
     Dates: start: 20141205
  5. DEPAKINE CHRONO TABLET MGA 500MG [Concomitant]
     Dosage: TWICE DAILY TWO
     Route: 048
     Dates: start: 20140523
  6. LEVODOPA/CARBIDOPA PCH 125 RET TABLET MGA 100/25MG [Suspect]
     Active Substance: CARBIDOPA\LEVODOPA
     Indication: PARKINSON^S DISEASE
     Dosage: 250 MILLIGRAM DAILY; 2 TIMES DAILY 1 PIECE
     Route: 048
     Dates: start: 20151201
  7. OXCARBAZEPINE PCH TABLET FILMOMHULD 600MG [Concomitant]
     Dosage: ONCE DAILY ONE, ONCE DAILY ONE AND ONCE DAILY TWO
     Route: 048
     Dates: start: 20140523
  8. RIVOTRIL DRUPPELS 2,5MG/ML [Concomitant]
     Dosage: 1 DF, AS REQUIRED
     Route: 048
     Dates: start: 20140523
  9. DIVISUN TABLET 800IE [Concomitant]
     Dosage: ONCE DAILY ONE
     Route: 048
     Dates: start: 20140523

REACTIONS (1)
  - Loss of consciousness [Recovering/Resolving]

NARRATIVE: CASE EVENT DATE: 20151205
